FAERS Safety Report 24063880 (Version 4)
Quarter: 2024Q4

REPORT INFORMATION
  Report Type: Report from Study
  Country: FR (occurrence: FR)
  Receive Date: 20240709
  Receipt Date: 20241206
  Transmission Date: 20250114
  Serious: No
  Sender: BAUSCH AND LOMB
  Company Number: FR-SA-2024SA190676

PATIENT
  Age: 62 Year
  Sex: Female
  Weight: 50 kg

DRUGS (23)
  1. DEXAMETHASONE [Suspect]
     Active Substance: DEXAMETHASONE
     Indication: Plasma cell myeloma refractory
     Dosage: 40MG, QW
     Route: 065
     Dates: start: 20240422, end: 20240520
  2. DEXAMETHASONE [Suspect]
     Active Substance: DEXAMETHASONE
     Dosage: 40MG, BIW
     Route: 065
     Dates: start: 20240325, end: 20240421
  3. DEXAMETHASONE [Suspect]
     Active Substance: DEXAMETHASONE
     Dosage: 40MG, QW
     Route: 065
     Dates: start: 20240521, end: 20240617
  4. DEXAMETHASONE [Suspect]
     Active Substance: DEXAMETHASONE
     Dosage: 40MG, QW
     Route: 065
     Dates: start: 20240618
  5. ISATUXIMAB [Suspect]
     Active Substance: ISATUXIMAB
     Indication: Plasma cell myeloma refractory
     Dosage: 530 MG, BIW
     Route: 042
     Dates: start: 20240618
  6. ISATUXIMAB [Suspect]
     Active Substance: ISATUXIMAB
     Dosage: 530 MG, BIW
     Route: 042
     Dates: start: 20240521, end: 20240617
  7. ISATUXIMAB [Suspect]
     Active Substance: ISATUXIMAB
     Dosage: 500 MG, BIW
     Route: 042
     Dates: start: 20240422, end: 20240520
  8. ISATUXIMAB [Suspect]
     Active Substance: ISATUXIMAB
     Dosage: 500 MG, BIW
     Route: 042
     Dates: start: 20240325, end: 20240421
  9. ISATUXIMAB [Suspect]
     Active Substance: ISATUXIMAB
     Dosage: 500 MG, QW
     Route: 042
     Dates: start: 20240325, end: 20240421
  10. CARFILZOMIB [Suspect]
     Active Substance: CARFILZOMIB
     Indication: Plasma cell myeloma refractory
     Dosage: 83 MG, QW
     Route: 065
     Dates: start: 20240422, end: 20240520
  11. CARFILZOMIB [Suspect]
     Active Substance: CARFILZOMIB
     Dosage: 85 MG, QW
     Route: 065
     Dates: start: 20240521, end: 20240617
  12. CARFILZOMIB [Suspect]
     Active Substance: CARFILZOMIB
     Dosage: 30 MG, QW
     Route: 065
     Dates: start: 20240325, end: 20240331
  13. CARFILZOMIB [Suspect]
     Active Substance: CARFILZOMIB
     Dosage: 83 MG, QW
     Route: 065
     Dates: start: 20240401, end: 20240421
  14. VENLAFAXINE [Concomitant]
     Active Substance: VENLAFAXINE HYDROCHLORIDE
     Indication: Depression
     Dates: start: 20220117
  15. PANTOPRAZOLE [Concomitant]
     Active Substance: PANTOPRAZOLE
     Indication: Premedication
     Dates: start: 20240325
  16. ZOPICLONE [Concomitant]
     Active Substance: ZOPICLONE
     Indication: Insomnia
     Dates: start: 20210623, end: 20240521
  17. ATORVASTATIN [Concomitant]
     Active Substance: ATORVASTATIN
     Indication: Prophylaxis
     Dates: start: 2020
  18. TRAMADOL [Concomitant]
     Active Substance: TRAMADOL
     Indication: Bone pain
     Dates: start: 20210209
  19. KARDEGIC [Concomitant]
     Active Substance: ASPIRIN DL-LYSINE
     Indication: Prophylaxis
     Dates: start: 2020
  20. ACETAMINOPHEN [Concomitant]
     Active Substance: ACETAMINOPHEN
     Indication: Premedication
     Dates: start: 20240325
  21. VALACYCLOVIR HYDROCHLORIDE [Concomitant]
     Active Substance: VALACYCLOVIR HYDROCHLORIDE
     Indication: Prophylaxis
     Dates: start: 202009
  22. ERYTHROPOIETIN [Concomitant]
     Active Substance: ERYTHROPOIETIN
     Indication: Anaemia
     Dates: start: 2023
  23. LORATADINE [Concomitant]
     Active Substance: LORATADINE
     Indication: Premedication
     Dates: start: 20240325

REACTIONS (6)
  - Neutropenia [Recovered/Resolved]
  - Thrombocytopenia [Recovered/Resolved]
  - Anaemia [Recovered/Resolved]
  - Bone pain [Recovered/Resolved]
  - Agitation [Not Recovered/Not Resolved]
  - Insomnia [Not Recovered/Not Resolved]

NARRATIVE: CASE EVENT DATE: 20240411
